FAERS Safety Report 16082909 (Version 1)
Quarter: 2019Q1

REPORT INFORMATION
  Report Type: Spontaneous
  Country: FR (occurrence: FR)
  Receive Date: 20190318
  Receipt Date: 20190318
  Transmission Date: 20190418
  Serious: Yes (Death)
  Sender: FDA-Public Use
  Company Number: FR-ADAAP-201900044

PATIENT
  Age: 8 Decade
  Sex: Male
  Weight: 71 kg

DRUGS (6)
  1. MONOTILDIEM 300 [Concomitant]
     Indication: HYPERTENSION
     Route: 048
  2. LUTATHERA [Suspect]
     Active Substance: LUTETIUM OXODOTREOTIDE LU-177
     Indication: CARCINOID TUMOUR OF THE SMALL BOWEL
     Route: 042
     Dates: start: 20181212, end: 20181212
  3. LAMICTAL [Concomitant]
     Active Substance: LAMOTRIGINE
     Indication: EPILEPSY
     Route: 048
  4. PRITOR PLUS [Concomitant]
     Active Substance: TELMISARTAN
     Indication: HYPERTENSION
     Route: 048
  5. LYSINE ARGININE [Concomitant]
     Indication: PREMEDICATION
     Route: 042
     Dates: start: 20181212, end: 20181212
  6. SMECTA [Concomitant]
     Active Substance: MONTMORILLONITE
     Indication: DIARRHOEA
     Route: 048

REACTIONS (3)
  - Peritonitis [Fatal]
  - Intestinal perforation [Fatal]
  - Intestinal sepsis [Fatal]

NARRATIVE: CASE EVENT DATE: 20181212
